FAERS Safety Report 10993070 (Version 3)
Quarter: 2017Q2

REPORT INFORMATION
  Report Type: Report from Study
  Country: GR (occurrence: GR)
  Receive Date: 20150407
  Receipt Date: 20170616
  Transmission Date: 20170829
  Serious: Yes (Other)
  Sender: FDA-Public Use
  Company Number: GR-UCBSA-2015009975

PATIENT
  Age: 78 Year
  Sex: Female

DRUGS (1)
  1. CERTOLIZUMAB PEGOL [Suspect]
     Active Substance: CERTOLIZUMAB PEGOL
     Indication: RHEUMATOID ARTHRITIS
     Dosage: 200 MG, UNK
     Route: 058
     Dates: start: 20150321, end: 20150321

REACTIONS (2)
  - Herpes virus infection [Unknown]
  - Pain [Unknown]

NARRATIVE: CASE EVENT DATE: 201503
